FAERS Safety Report 10714402 (Version 1)
Quarter: 2015Q1

REPORT INFORMATION
  Report Type: Spontaneous
  Country: TR (occurrence: TR)
  Receive Date: 20150115
  Receipt Date: 20150115
  Transmission Date: 20150721
  Serious: Yes (Other)
  Sender: FDA-Public Use
  Company Number: PHHY2015TR003479

PATIENT
  Age: 26 Year
  Sex: Female

DRUGS (1)
  1. CARBAMAZEPINE. [Suspect]
     Active Substance: CARBAMAZEPINE
     Indication: EPILEPSY
     Dosage: UNK
     Route: 065

REACTIONS (5)
  - Pain [Recovered/Resolved]
  - Femoral neck fracture [Recovered/Resolved]
  - Gait disturbance [Recovered/Resolved]
  - Weight bearing difficulty [Unknown]
  - Groin pain [Recovered/Resolved]
